FAERS Safety Report 9730002 (Version 2)
Quarter: 2013Q4

REPORT INFORMATION
  Report Type: Spontaneous
  Country: US (occurrence: US)
  Receive Date: 20131204
  Receipt Date: 20131210
  Transmission Date: 20140711
  Serious: Yes (Other)
  Sender: FDA-Public Use
  Company Number: US-TEVA-447704USA

PATIENT
  Sex: Female

DRUGS (4)
  1. GABAPENTIN [Suspect]
     Indication: PAIN
  2. GABAPENTIN [Suspect]
     Indication: HYPOAESTHESIA
  3. GABAPENTIN [Suspect]
     Indication: MULTIPLE SCLEROSIS
  4. COPAXONE [Concomitant]

REACTIONS (8)
  - Multiple sclerosis relapse [Unknown]
  - Demyelination [Unknown]
  - Loss of control of legs [Unknown]
  - Drug effect decreased [Unknown]
  - Pain [Unknown]
  - Hypoaesthesia [Unknown]
  - Balance disorder [Unknown]
  - Off label use [Unknown]
